FAERS Safety Report 6303638-X (Version None)
Quarter: 2009Q3

REPORT INFORMATION
  Report Type: 
  Country: None (occurrence: None)
  Receive Date: 20090807
  Receipt Date: 20090807
  Transmission Date: 20100115
  Serious: Yes (Death, Life-Threatening)
  Sender: FDA-Public Use
  Company Number: None

PATIENT
  Age: 83 Year
  Sex: Male

DRUGS (2)
  1. FLEET ENEMA (SODIUM PHOSPHATE) (SODIUM PHOSPHATE DIBASIC/SODIUM PHOSPH [Suspect]
     Indication: CONSTIPATION
     Dosage: 250 ML, BID
  2. FLEET ENEMA (SODIUM PHOSPHATE) (SODIUM PHOSPHATE DIBASIC/SODIUM PHOSPH [Suspect]
     Indication: FAECALOMA
     Dosage: 250 ML, BID

REACTIONS (15)
  - BLOOD CALCIUM DECREASED [None]
  - BLOOD CREATININE INCREASED [None]
  - BLOOD POTASSIUM INCREASED [None]
  - BLOOD SODIUM INCREASED [None]
  - COMA [None]
  - CONFUSIONAL STATE [None]
  - ELECTROMECHANICAL DISSOCIATION [None]
  - GENERAL PHYSICAL HEALTH DETERIORATION [None]
  - LARGE INTESTINAL HAEMORRHAGE [None]
  - LARGE INTESTINE PERFORATION [None]
  - PALLOR [None]
  - PERITONITIS [None]
  - RESTLESSNESS [None]
  - SEPSIS [None]
  - SOMNOLENCE [None]
